FAERS Safety Report 10108972 (Version 1)
Quarter: 2014Q2

REPORT INFORMATION
  Report Type: Spontaneous
  Country: FR (occurrence: FR)
  Receive Date: 20140425
  Receipt Date: 20140425
  Transmission Date: 20141212
  Serious: Yes (Life-Threatening)
  Sender: FDA-Public Use
  Company Number: FR-ASTRAZENECA-2014SE27948

PATIENT
  Age: 872 Month
  Sex: Male

DRUGS (7)
  1. ATACAND [Suspect]
     Indication: HYPERTENSION
     Route: 048
     Dates: start: 2007
  2. ATACAND [Suspect]
     Indication: HYPERTENSION
     Route: 048
     Dates: start: 200904, end: 201112
  3. METFORMINE [Suspect]
     Indication: TYPE 2 DIABETES MELLITUS
     Route: 048
     Dates: start: 200804
  4. ALLOPURINOL [Suspect]
     Indication: HYPERURICAEMIA
     Route: 048
  5. CORDARONE [Suspect]
     Indication: ATRIAL FIBRILLATION
     Route: 048
  6. PREVISCAN [Suspect]
     Indication: THROMBOSIS PROPHYLAXIS
     Route: 048
  7. LEVOTHYROX [Suspect]
     Indication: AUTOIMMUNE THYROIDITIS
     Route: 048
     Dates: start: 2003

REACTIONS (2)
  - Metastasis [Recovered/Resolved with Sequelae]
  - Lung adenocarcinoma metastatic [Unknown]
